FAERS Safety Report 20053994 (Version 1)
Quarter: 2021Q4

REPORT INFORMATION
  Report Type: Spontaneous
  Country: US (occurrence: US)
  Receive Date: 20211110
  Receipt Date: 20211110
  Transmission Date: 20220304
  Serious: No
  Sender: FDA-Public Use
  Company Number: US-PFIZER INC-202100985674

PATIENT
  Age: 40 Year
  Sex: Female

DRUGS (2)
  1. CHANTIX [Suspect]
     Active Substance: VARENICLINE TARTRATE
     Indication: Smoking cessation therapy
     Dosage: 0.5 MG
  2. CHANTIX [Suspect]
     Active Substance: VARENICLINE TARTRATE
     Dosage: 1 MG

REACTIONS (8)
  - Anger [Unknown]
  - Irritability [Unknown]
  - Abnormal behaviour [Unknown]
  - Intrusive thoughts [Unknown]
  - Thinking abnormal [Unknown]
  - Gait inability [Unknown]
  - Periorbital disorder [Unknown]
  - Recalled product administered [Unknown]
